FAERS Safety Report 8571015-7 (Version None)
Quarter: 2012Q3

REPORT INFORMATION
  Report Type: 
  Country: None (occurrence: None)
  Receive Date: 20120806
  Receipt Date: 20120726
  Transmission Date: 20120928
  Serious: Yes (Hospitalization)
  Sender: FDA-Public Use
  Company Number: US-009507513-2009SP016965

PATIENT
  Sex: Female
  Weight: 54.43 kg

DRUGS (4)
  1. IMITREX [Concomitant]
     Dates: start: 20051201
  2. NUVARING [Suspect]
     Indication: CONTRACEPTION
     Dosage: 1 DF, QM
     Route: 067
     Dates: start: 20050729, end: 20051201
  3. TYLENOL (CAPLET) [Concomitant]
     Indication: HEADACHE
     Dates: start: 20051101, end: 20051201
  4. CEPHALEXIN [Concomitant]
     Indication: INFECTION PROPHYLAXIS
     Dosage: FOR 30 DAYS
     Dates: start: 20051110

REACTIONS (11)
  - ENCEPHALOMALACIA [None]
  - INFLUENZA [None]
  - DEVICE FAILURE [None]
  - WEIGHT DECREASED [None]
  - VARICOSE VEIN [None]
  - EMBOLIC STROKE [None]
  - PHLEBITIS [None]
  - CARDIAC ANEURYSM [None]
  - INTERVERTEBRAL DISC DISORDER [None]
  - FIBROADENOMA OF BREAST [None]
  - MIGRAINE [None]
